FAERS Safety Report 4693693-5 (Version None)
Quarter: 2005Q2

REPORT INFORMATION
  Report Type: 
  Country: None (occurrence: None)
  Receive Date: 20050615
  Receipt Date: 20050531
  Transmission Date: 20051028
  Serious: Yes (Hospitalization, Other)
  Sender: FDA-Public Use
  Company Number: USA031050402

PATIENT
  Age: 59 Year
  Sex: Female
  Weight: 67 kg

DRUGS (24)
  1. FORTEO [Suspect]
     Indication: OSTEOPOROSIS
     Dosage: 11 U DAY
     Dates: start: 20031001, end: 20050527
  2. HUMALOG [Suspect]
  3. MIACALCIN [Concomitant]
  4. REMICADE [Concomitant]
  5. ARAVA [Concomitant]
  6. ACETYLSALICYLIC ACID SRT [Concomitant]
  7. CARDIZEM CD [Concomitant]
  8. CLIMARA [Concomitant]
  9. CELEBREX [Concomitant]
  10. CALCIUM CITRATE [Concomitant]
  11. IMDUR [Concomitant]
  12. LANTUS [Concomitant]
  13. KLONOPIN [Concomitant]
  14. LAMISIL [Concomitant]
  15. SINEMET [Concomitant]
  16. ZOLOFT [Concomitant]
  17. DURAGESIC (FENTANYL) [Concomitant]
  18. LIDODERM (LIDOCAINE) [Concomitant]
  19. LORTAB [Concomitant]
  20. HUMIRA [Concomitant]
  21. ALBUTEROL [Concomitant]
  22. LOMOTIL [Concomitant]
  23. PREVACID [Concomitant]
  24. FOSAMAX [Concomitant]

REACTIONS (17)
  - BACK PAIN [None]
  - FRACTURED SACRUM [None]
  - IMPAIRED HEALING [None]
  - INTENTIONAL MISUSE [None]
  - NERVOUS SYSTEM DISORDER [None]
  - OEDEMA PERIPHERAL [None]
  - OPEN WOUND [None]
  - OSTEOARTHRITIS [None]
  - PAIN [None]
  - PAIN IN EXTREMITY [None]
  - POSTOPERATIVE INFECTION [None]
  - PROCEDURAL COMPLICATION [None]
  - PULMONARY OEDEMA [None]
  - SNEEZING [None]
  - WALKING AID USER [None]
  - WHEELCHAIR USER [None]
  - WOUND SECRETION [None]
